FAERS Safety Report 5307992-7 (Version None)
Quarter: 2007Q2

REPORT INFORMATION
  Report Type: 
  Country: None (occurrence: None)
  Receive Date: 20070426
  Receipt Date: 20070413
  Transmission Date: 20071010
  Serious: Yes (Other)
  Sender: FDA-Public Use
  Company Number: 2006AP03794

PATIENT
  Age: 19025 Day
  Sex: Female
  Weight: 47 kg

DRUGS (11)
  1. IRESSA [Suspect]
     Indication: NON-SMALL CELL LUNG CANCER
     Route: 048
     Dates: start: 20060622, end: 20060727
  2. IRESSA [Suspect]
     Indication: LUNG ADENOCARCINOMA
     Route: 048
     Dates: start: 20060622, end: 20060727
  3. IRESSA [Suspect]
     Route: 048
     Dates: start: 20060815, end: 20060817
  4. IRESSA [Suspect]
     Route: 048
     Dates: start: 20060815, end: 20060817
  5. IRESSA [Suspect]
     Route: 048
     Dates: start: 20060818
  6. IRESSA [Suspect]
     Route: 048
     Dates: start: 20060818
  7. MEILAX [Concomitant]
     Route: 048
     Dates: start: 20060615, end: 20070125
  8. LENDORMIN [Concomitant]
     Route: 048
     Dates: start: 20060616, end: 20070125
  9. MINOCYCLINE HCL [Concomitant]
     Indication: RASH
     Route: 048
     Dates: start: 20060630, end: 20060727
  10. GASTER [Concomitant]
     Route: 048
     Dates: start: 20060630, end: 20070125
  11. RADIOTHERAPY [Concomitant]
     Dosage: TO LEFT FEMUR
     Dates: start: 20060614, end: 20060705

REACTIONS (2)
  - DRUG ERUPTION [None]
  - EOSINOPHILIC PNEUMONIA [None]
